FAERS Safety Report 21834649 (Version 3)
Quarter: 2025Q2

REPORT INFORMATION
  Report Type: Report from Study
  Country: US (occurrence: US)
  Receive Date: 20230108
  Receipt Date: 20250624
  Transmission Date: 20250716
  Serious: Yes (Other)
  Sender: ABBVIE
  Company Number: US-ABBVIE-22K-163-4233337-00

PATIENT
  Age: 56 Year
  Sex: Male

DRUGS (6)
  1. HUMIRA [Suspect]
     Active Substance: ADALIMUMAB
     Indication: Crohn^s disease
     Route: 058
     Dates: start: 20150615, end: 202004
  2. HUMIRA [Suspect]
     Active Substance: ADALIMUMAB
     Route: 058
     Dates: start: 202101
  3. HUMIRA [Suspect]
     Active Substance: ADALIMUMAB
     Route: 058
     Dates: start: 20140115
  4. HUMIRA [Suspect]
     Active Substance: ADALIMUMAB
     Route: 058
     Dates: start: 20191201
  5. Cylosporin [Concomitant]
     Indication: Product used for unknown indication
     Dosage: FORM STRENGTH: 100 MILLIGRAM
  6. PREDNISONE [Suspect]
     Active Substance: PREDNISONE
     Indication: Product used for unknown indication
     Route: 065

REACTIONS (9)
  - Liver transplant [Recovered/Resolved]
  - Hip fracture [Not Recovered/Not Resolved]
  - Foot fracture [Not Recovered/Not Resolved]
  - Arthralgia [Unknown]
  - Arthropathy [Unknown]
  - Lower limb fracture [Not Recovered/Not Resolved]
  - Multiple fractures [Unknown]
  - Foot fracture [Unknown]
  - Blood cholesterol increased [Not Recovered/Not Resolved]

NARRATIVE: CASE EVENT DATE: 20200414
